FAERS Safety Report 9873208 (Version 1)
Quarter: 2014Q1

REPORT INFORMATION
  Report Type: Other
  Country: US (occurrence: US)
  Receive Date: 20140206
  Receipt Date: 20140206
  Transmission Date: 20141002
  Serious: No
  Sender: FDA-Public Use
  Company Number: US-ACORDA-ACO_101294_2014

PATIENT
  Age: 64 Year
  Sex: Male
  Weight: 77.98 kg

DRUGS (4)
  1. AMPYRA [Suspect]
     Indication: GAIT DISTURBANCE
     Dosage: 10 MG, BID
     Route: 048
     Dates: start: 20131220, end: 20140103
  2. COPAXONE [Concomitant]
     Indication: PRODUCT USED FOR UNKNOWN INDICATION
     Dosage: UNK
     Route: 065
  3. CHOLESTEROL [Concomitant]
     Indication: PRODUCT USED FOR UNKNOWN INDICATION
     Dosage: UNK
     Route: 065
  4. ANTIHYPERTENSIVES [Concomitant]
     Indication: PRODUCT USED FOR UNKNOWN INDICATION
     Dosage: UNK
     Route: 065

REACTIONS (7)
  - Rib fracture [Recovering/Resolving]
  - Fall [Recovered/Resolved]
  - Abdominal discomfort [Unknown]
  - Diarrhoea [Recovered/Resolved]
  - Musculoskeletal chest pain [Recovering/Resolving]
  - Balance disorder [Not Recovered/Not Resolved]
  - Drug ineffective [Unknown]
